FAERS Safety Report 7477806-8 (Version None)
Quarter: 2011Q2

REPORT INFORMATION
  Report Type: 
  Country: None (occurrence: None)
  Receive Date: 20110511
  Receipt Date: 20110511
  Transmission Date: 20111010
  Serious: Yes (Other)
  Sender: FDA-Public Use
  Company Number: None

PATIENT
  Age: 3 Year
  Weight: 17.3 kg

DRUGS (1)
  1. SINGULAIR [Suspect]
     Indication: RHINITIS ALLERGIC
     Dosage: SINGULAIR 4MG DAILY ORALLY
     Route: 048
     Dates: start: 20110201, end: 20110401

REACTIONS (5)
  - AGGRESSION [None]
  - IRRITABILITY [None]
  - ANGER [None]
  - ABNORMAL BEHAVIOUR [None]
  - SOMNOLENCE [None]
